FAERS Safety Report 22323962 (Version 1)
Quarter: 2023Q2

REPORT INFORMATION
  Report Type: Spontaneous
  Country: US (occurrence: US)
  Receive Date: 20230516
  Receipt Date: 20230516
  Transmission Date: 20230722
  Serious: Yes (Death, Other)
  Sender: FDA-Public Use
  Company Number: US-AMGEN-USASP2023082257

PATIENT
  Age: 60 Year
  Sex: Male

DRUGS (3)
  1. RITUXIMAB [Suspect]
     Active Substance: RITUXIMAB
     Indication: Paraneoplastic pemphigus
     Dosage: 375 MILLIGRAM/M2, QWK
     Route: 065
  2. METHYLPREDNISOLONE [Concomitant]
     Active Substance: METHYLPREDNISOLONE
     Dosage: 1 MILLIGRAM/KG, QD
     Route: 042
  3. HUMAN IMMUNOGLOBULIN G [Concomitant]
     Active Substance: HUMAN IMMUNOGLOBULIN G
     Dosage: 2 MILLIGRAM, Q2WK

REACTIONS (4)
  - Intestinal perforation [Fatal]
  - General physical health deterioration [Unknown]
  - Drug effective for unapproved indication [Unknown]
  - Off label use [Unknown]
